FAERS Safety Report 6234311-4 (Version None)
Quarter: 2009Q2

REPORT INFORMATION
  Report Type: 
  Country: None (occurrence: None)
  Receive Date: 20090612
  Receipt Date: 20090529
  Transmission Date: 20091009
  Serious: Yes (Death, Hospitalization)
  Sender: FDA-Public Use
  Company Number: RENA-1000447

PATIENT
  Age: 64 Year
  Sex: Male

DRUGS (2)
  1. RENAGEL [Suspect]
     Indication: HYPERPHOSPHATAEMIA
     Dates: start: 20080101
  2. WARFARIN SODIUM [Concomitant]

REACTIONS (6)
  - BALANITIS [None]
  - BLOOD PARATHYROID HORMONE INCREASED [None]
  - BLOOD PHOSPHORUS INCREASED [None]
  - CALCIPHYLAXIS [None]
  - CANDIDIASIS [None]
  - PENILE NECROSIS [None]
